FAERS Safety Report 21281755 (Version 2)
Quarter: 2024Q1

REPORT INFORMATION
  Report Type: Spontaneous
  Country: FR (occurrence: FR)
  Receive Date: 20220901
  Receipt Date: 20240111
  Transmission Date: 20240410
  Serious: Yes (Life-Threatening)
  Sender: FDA-Public Use
  Company Number: None

PATIENT
  Age: 17 Month
  Sex: Male
  Weight: 10 kg

DRUGS (5)
  1. SEVOFLURANE [Suspect]
     Active Substance: SEVOFLURANE
     Indication: Surgery
     Route: 055
     Dates: start: 20220803, end: 20220803
  2. KETAMINE [Suspect]
     Active Substance: KETAMINE
     Indication: Surgery
     Route: 042
     Dates: start: 20220803, end: 20220803
  3. ALFENTANIL HYDROCHLORIDE [Suspect]
     Active Substance: ALFENTANIL HYDROCHLORIDE
     Indication: Surgery
     Route: 042
     Dates: start: 20220803, end: 20220803
  4. PROPOFOL LIPURO [Suspect]
     Active Substance: PROPOFOL
     Indication: Surgery
     Route: 042
     Dates: start: 20220803, end: 20220803
  5. MORPHINE [Suspect]
     Active Substance: MORPHINE
     Indication: Surgery
     Route: 042
     Dates: start: 20220803, end: 20220803

REACTIONS (1)
  - Non-cardiogenic pulmonary oedema [Recovered/Resolved]

NARRATIVE: CASE EVENT DATE: 20220804
